FAERS Safety Report 6825587-0 (Version None)
Quarter: 2010Q3

REPORT INFORMATION
  Report Type: 
  Country: None (occurrence: None)
  Receive Date: 20100708
  Receipt Date: 20070625
  Transmission Date: 20110219
  Serious: No
  Sender: FDA-Public Use
  Company Number: US-PFIZER INC-2006128531

PATIENT
  Sex: Female
  Weight: 86.18 kg

DRUGS (8)
  1. CHANTIX [Suspect]
     Indication: SMOKING CESSATION THERAPY
     Dates: start: 20060901
  2. ATENOLOL [Concomitant]
  3. ALPRAZOLAM [Concomitant]
  4. LISINOPRIL [Concomitant]
     Indication: HYPERTENSION
     Dates: start: 20060901
  5. POTASSIUM CHLORIDE [Concomitant]
  6. AMARYL [Concomitant]
     Indication: TYPE 2 DIABETES MELLITUS
  7. VYTORIN [Concomitant]
  8. VITAMINS [Concomitant]

REACTIONS (8)
  - ABDOMINAL PAIN UPPER [None]
  - ANXIETY [None]
  - HYPERHIDROSIS [None]
  - ILL-DEFINED DISORDER [None]
  - NAUSEA [None]
  - NIGHTMARE [None]
  - PANIC REACTION [None]
  - STRESS [None]
